FAERS Safety Report 24006597 (Version 9)
Quarter: 2025Q4

REPORT INFORMATION
  Report Type: Report from Study
  Country: EU (occurrence: EU)
  Receive Date: 20240624
  Receipt Date: 20251205
  Transmission Date: 20260118
  Serious: Yes (Other)
  Sender: TAKEDA
  Company Number: EU-TAKEDA-2024TUS061345

PATIENT
  Age: 20 Year
  Sex: Male

DRUGS (3)
  1. IDURSULFASE [Suspect]
     Active Substance: IDURSULFASE
     Indication: Product used for unknown indication
     Dosage: UNK
  2. IDURSULFASE [Suspect]
     Active Substance: IDURSULFASE
     Dosage: 0.5 MILLIGRAM/KILOGRAM, 1/WEEK
  3. IDURSULFASE [Suspect]
     Active Substance: IDURSULFASE
     Dosage: UNK UNK, 1/WEEK
     Dates: start: 20210915

REACTIONS (8)
  - Infusion site scab [Not Recovered/Not Resolved]
  - Infusion site haematoma [Not Recovered/Not Resolved]
  - Vascular device infection [Not Recovered/Not Resolved]
  - Poor venous access [Not Recovered/Not Resolved]
  - Device issue [Unknown]
  - Device use issue [Not Recovered/Not Resolved]
  - Complication associated with device [Not Recovered/Not Resolved]
  - Vein rupture [Not Recovered/Not Resolved]
